FAERS Safety Report 13648305 (Version 2)
Quarter: 2017Q2

REPORT INFORMATION
  Report Type: Spontaneous
  Country: JP (occurrence: JP)
  Receive Date: 20170613
  Receipt Date: 20170614
  Transmission Date: 20170830
  Serious: Yes (Other)
  Sender: FDA-Public Use
  Company Number: JP-ELI_LILLY_AND_COMPANY-JP201704005578

PATIENT
  Sex: Female
  Weight: 65 kg

DRUGS (4)
  1. PRASUGREL HYDROCHLORIDE [Suspect]
     Active Substance: PRASUGREL HYDROCHLORIDE
     Indication: ANTIPLATELET THERAPY
     Dosage: 3.75 MG, QD
     Route: 048
     Dates: start: 20170315, end: 20170323
  2. BAYASPIRIN [Concomitant]
     Active Substance: ASPIRIN
     Indication: ANTIPLATELET THERAPY
     Dosage: UNK UNK, UNKNOWN
     Route: 065
  3. THYRADIN [Concomitant]
     Active Substance: LEVOTHYROXINE
     Indication: PRODUCT USED FOR UNKNOWN INDICATION
     Dosage: UNK UNK, UNKNOWN
     Route: 065
  4. TAKELDA [Concomitant]
     Active Substance: ASPIRIN\LANSOPRAZOLE
     Indication: ANTIPLATELET THERAPY
     Dosage: UNK UNK, UNKNOWN
     Route: 048

REACTIONS (6)
  - Creatinine renal clearance increased [Recovered/Resolved]
  - Epistaxis [Recovered/Resolved]
  - Decreased appetite [Recovered/Resolved]
  - Aspartate aminotransferase abnormal [Recovered/Resolved]
  - Rash generalised [Recovered/Resolved]
  - Alanine aminotransferase abnormal [Recovered/Resolved]

NARRATIVE: CASE EVENT DATE: 201703
